FAERS Safety Report 4981646-9 (Version None)
Quarter: 2006Q2

REPORT INFORMATION
  Report Type: 
  Country: None (occurrence: None)
  Receive Date: 20060425
  Receipt Date: 20060420
  Transmission Date: 20061013
  Serious: Yes (Life-Threatening)
  Sender: FDA-Public Use
  Company Number: PHBS2006NO05785

PATIENT
  Age: 15 Year
  Sex: Male

DRUGS (3)
  1. RITALIN [Suspect]
     Dosage: 4 DF, ONCE/SINGLE
     Route: 048
  2. STRATTERA [Suspect]
     Indication: ATTENTION DEFICIT/HYPERACTIVITY DISORDER
     Dosage: 12 MG/KG, QD
     Route: 065
  3. ALCOHOL [Suspect]
     Dosage: 4-6 DL/D
     Route: 048
     Dates: start: 20060218, end: 20060218

REACTIONS (3)
  - ALCOHOL POISONING [None]
  - DRUG INTERACTION [None]
  - RESPIRATORY FAILURE [None]
